FAERS Safety Report 5284352-9 (Version None)
Quarter: 2007Q2

REPORT INFORMATION
  Report Type: 
  Country: None (occurrence: None)
  Receive Date: 20070403
  Receipt Date: 20070330
  Transmission Date: 20071010
  Serious: Yes (Life-Threatening, Hospitalization)
  Sender: FDA-Public Use
  Company Number: PHRM2007FR01161

PATIENT
  Sex: Female

DRUGS (1)
  1. SYNTOCINON [Suspect]

REACTIONS (1)
  - OBSTETRICAL PULMONARY EMBOLISM [None]
